FAERS Safety Report 7005963-6 (Version None)
Quarter: 2010Q3

REPORT INFORMATION
  Report Type: 
  Country: None (occurrence: None)
  Receive Date: 20100921
  Receipt Date: 20100915
  Transmission Date: 20110219
  Serious: Yes (Other)
  Sender: FDA-Public Use
  Company Number: CHPA2010FI14867

PATIENT
  Sex: Male

DRUGS (1)
  1. NICOTINELL GUM (NCH) [Suspect]
     Dosage: UNK, UNK
     Route: 048

REACTIONS (3)
  - ENAMEL ANOMALY [None]
  - TOOTH EROSION [None]
  - TOOTH FRACTURE [None]
